FAERS Safety Report 10282771 (Version 2)
Quarter: 2014Q3

REPORT INFORMATION
  Report Type: Report from Study
  Country: DE (occurrence: DE)
  Receive Date: 20140708
  Receipt Date: 20140808
  Transmission Date: 20150326
  Serious: Yes (Hospitalization)
  Sender: FDA-Public Use
  Company Number: DE-AMGEN-DEUCT2014050077

PATIENT
  Age: 46 Year
  Sex: Female
  Weight: 67 kg

DRUGS (5)
  1. DENOSUMAB [Suspect]
     Active Substance: DENOSUMAB
     Indication: BREAST CANCER
     Dosage: 120 MG, UNK
     Route: 058
     Dates: start: 20120522
  2. SELEN                              /00075001/ [Concomitant]
     Dosage: 1 UNK, UNK
     Route: 048
     Dates: start: 201210
  3. SANDOCAL D [Concomitant]
     Dosage: UNK
     Route: 048
     Dates: start: 20120522
  4. IBUPROFEN. [Concomitant]
     Active Substance: IBUPROFEN
     Dosage: 400 MG, UNK
     Route: 048
     Dates: start: 2007
  5. LACHESIS MUTA [Concomitant]
     Active Substance: LACHESIS MUTA VENOM
     Dosage: 1 UNK, UNK
     Route: 048
     Dates: start: 20120628

REACTIONS (1)
  - Foot fracture [Unknown]

NARRATIVE: CASE EVENT DATE: 20140511
